FAERS Safety Report 15753844 (Version 2)
Quarter: 2018Q4

REPORT INFORMATION
  Report Type: Report from Study
  Country: BR (occurrence: BR)
  Receive Date: 20181222
  Receipt Date: 20181228
  Transmission Date: 20190205
  Serious: Yes (Other)
  Sender: FDA-Public Use
  Company Number: PHHY2018BR097086

PATIENT
  Age: 55 Year
  Sex: Female
  Weight: 80 kg

DRUGS (4)
  1. XOLAIR [Suspect]
     Active Substance: OMALIZUMAB
     Indication: URTICARIA
     Dosage: 300 MG, QMO
     Route: 058
     Dates: start: 20181027
  2. MONTELUKAST [Concomitant]
     Active Substance: MONTELUKAST SODIUM
     Indication: PRODUCT USED FOR UNKNOWN INDICATION
     Dosage: UNK
     Route: 065
  3. XOLAIR [Suspect]
     Active Substance: OMALIZUMAB
     Dosage: UNK
     Route: 058
     Dates: start: 20181127
  4. SANDIMMUNE NEORAL [Suspect]
     Active Substance: CYCLOSPORINE
     Indication: URTICARIA CHRONIC
     Dosage: 50 MG, BID
     Route: 065
     Dates: start: 201808, end: 201808

REACTIONS (18)
  - Urticaria [Not Recovered/Not Resolved]
  - Blood glucose increased [Recovering/Resolving]
  - Tremor [Unknown]
  - Burning sensation [Unknown]
  - Swelling [Unknown]
  - Hypothyroidism [Unknown]
  - Product use in unapproved indication [Unknown]
  - Drug effect decreased [Unknown]
  - Pruritus [Not Recovered/Not Resolved]
  - Dizziness [Recovered/Resolved]
  - Insomnia [Recovering/Resolving]
  - Weight increased [Not Recovered/Not Resolved]
  - Angioedema [Not Recovered/Not Resolved]
  - Generalised oedema [Recovering/Resolving]
  - Oedema [Unknown]
  - Swelling face [Not Recovered/Not Resolved]
  - Agitation [Unknown]
  - Body temperature increased [Unknown]

NARRATIVE: CASE EVENT DATE: 201808
